FAERS Safety Report 4854496-1 (Version None)
Quarter: 2005Q4

REPORT INFORMATION
  Report Type: 
  Country: None (occurrence: None)
  Receive Date: 20051215
  Receipt Date: 20051206
  Transmission Date: 20060501
  Serious: Yes (Hospitalization)
  Sender: FDA-Public Use
  Company Number: 2005CG02046

PATIENT
  Sex: Male

DRUGS (2)
  1. NAROPIN [Suspect]
     Indication: LOCAL ANAESTHESIA
     Route: 053
     Dates: start: 20051001, end: 20051001
  2. LAMICTAL [Interacting]
     Indication: EPILEPSY

REACTIONS (3)
  - DRUG INTERACTION [None]
  - PARAESTHESIA [None]
  - SENSORY DISTURBANCE [None]
